FAERS Safety Report 25972573 (Version 1)
Quarter: 2025Q4

REPORT INFORMATION
  Report Type: Spontaneous
  Country: EU (occurrence: EU)
  Receive Date: 20251029
  Receipt Date: 20251029
  Transmission Date: 20260117
  Serious: Yes (Hospitalization)
  Sender: ACCORD
  Company Number: None

PATIENT
  Age: 61 Year
  Sex: Female
  Weight: 89 kg

DRUGS (1)
  1. METHOTREXATE [Suspect]
     Active Substance: METHOTREXATE
     Indication: Rheumatoid arthritis
     Dosage: 10 MILLIGRAM SUBCUTANEOUSLY 1X/WEEK, STRENGTH: 50 MG/ML
     Dates: start: 20200101, end: 20250818

REACTIONS (2)
  - Normocytic anaemia [Recovering/Resolving]
  - Thrombocytopenia [Recovering/Resolving]
